FAERS Safety Report 23465783 (Version 1)
Quarter: 2024Q1

REPORT INFORMATION
  Report Type: Spontaneous
  Country: US (occurrence: US)
  Receive Date: 20240201
  Receipt Date: 20240201
  Transmission Date: 20240410
  Serious: No
  Sender: FDA-Public Use
  Company Number: US-SA-SAC20240125001249

PATIENT
  Age: 63 Year
  Sex: Male

DRUGS (1)
  1. DUPIXENT [Suspect]
     Active Substance: DUPILUMAB
     Indication: Dermatitis
     Dosage: 300 MG, QOW
     Route: 058

REACTIONS (9)
  - Skin weeping [Unknown]
  - Infection [Recovered/Resolved]
  - Skin fissures [Unknown]
  - Eyelid margin crusting [Unknown]
  - Condition aggravated [Unknown]
  - Pruritus [Unknown]
  - Eye irritation [Unknown]
  - Rash [Unknown]
  - Product use in unapproved indication [Unknown]
